FAERS Safety Report 8668466 (Version 2)
Quarter: 2012Q4

REPORT INFORMATION
  Report Type: Spontaneous
  Country: US (occurrence: None)
  Receive Date: 20120702
  Receipt Date: 20120814
  Transmission Date: 20130627
  Serious: Yes (Hospitalization, Other)
  Sender: FDA-Public Use
  Company Number: 2012P1042713

PATIENT
  Age: 58 Year
  Sex: Female
  Weight: 162 kg

DRUGS (12)
  1. LITHIUM CARBONATE [Suspect]
     Indication: BIPOLAR DISORDER
     Dosage: 300 MG; BID,PO
     Route: 048
     Dates: start: 20120608
  2. LITHIUM CARBONATE [Suspect]
     Indication: MANIA
     Dosage: 300 MG; BID,PO
     Route: 048
     Dates: start: 20120608
  3. DEPAKOTE [Suspect]
     Indication: BIPOLAR DISORDER
     Dates: start: 1998
  4. DEPAKOTE [Suspect]
     Indication: MANIA
     Dates: start: 1998
  5. DEPAKOTE [Suspect]
     Indication: BIPOLAR DISORDER
     Dates: start: 2005
  6. DEPAKOTE [Suspect]
     Indication: MANIA
     Dates: start: 2005
  7. LITHIUM CARBONATE [Suspect]
     Indication: BIPOLAR DISORDER
     Dates: start: 1995
  8. LITHIUM CARBONATE [Suspect]
     Indication: MANIA
     Dates: start: 1995
  9. LITHIUM CARBONATE [Suspect]
     Indication: BIPOLAR DISORDER
     Dates: start: 1998
  10. LITHIUM CARBONATE [Suspect]
     Indication: MANIA
     Dates: start: 1998
  11. CLONAZEPAM [Concomitant]
  12. SEROQUEL [Concomitant]

REACTIONS (21)
  - Mental disorder [None]
  - Paraesthesia [None]
  - Mania [None]
  - Vitamin D decreased [None]
  - Thyroid function test abnormal [None]
  - Weight increased [None]
  - Weight fluctuation [None]
  - Hypothermia [None]
  - Alcohol poisoning [None]
  - Intentional overdose [None]
  - Coma [None]
  - Miosis [None]
  - Pupillary reflex impaired [None]
  - Hypoxia [None]
  - Suicide attempt [None]
  - Depression [None]
  - Lethargy [None]
  - Haemoglobin decreased [None]
  - Haematocrit decreased [None]
  - Aspartate aminotransferase increased [None]
  - Blood potassium decreased [None]
